FAERS Safety Report 7375360-2 (Version None)
Quarter: 2011Q1

REPORT INFORMATION
  Report Type: 
  Country: None (occurrence: None)
  Receive Date: 20110325
  Receipt Date: 20110316
  Transmission Date: 20110831
  Serious: Yes (Hospitalization)
  Sender: FDA-Public Use
  Company Number: ES-SHIRE-SPV1-2011-00390

PATIENT
  Age: 59 Year
  Sex: Male

DRUGS (11)
  1. FOSRENOL [Suspect]
     Dosage: 3500 MG, 1X/DAY:QD
     Dates: start: 20090701, end: 20090901
  2. PREDNISONE [Concomitant]
     Indication: PRODUCT USED FOR UNKNOWN INDICATION
     Dosage: 2.5 MG, 1X/DAY:QD
  3. PARICALCITOL [Concomitant]
     Indication: HYPERPARATHYROIDISM SECONDARY
     Dosage: 1 PG, OTHER 1/ 2 DAYS
  4. CINACALCET [Concomitant]
     Indication: HYPERPARATHYROIDISM SECONDARY
     Dosage: 60 MG, 1X/DAY:QD
     Dates: start: 20081101, end: 20090701
  5. CINACALCET [Concomitant]
     Dosage: 60 MG, 1X/DAY:QD
     Dates: start: 20090901
  6. CALCIUM ACETATE [Concomitant]
     Indication: HYPERPARATHYROIDISM SECONDARY
     Dosage: 3000 MG, 1X/DAY:QD
  7. CINACALCET [Concomitant]
     Dosage: 90 MG, 1X/DAY:QD
     Dates: start: 20090701, end: 20090901
  8. FOSRENOL [Suspect]
     Indication: HYPERPHOSPHATAEMIA
     Dosage: 3750 MG,DAILY, FREQUENCY UNKNOWN
     Route: 048
     Dates: start: 20090901, end: 20100407
  9. FOSRENOL [Suspect]
     Dosage: 2000 MG, 1X/DAY:QD
     Dates: start: 20081101, end: 20090701
  10. OMEPRAZOLE [Concomitant]
     Indication: PRODUCT USED FOR UNKNOWN INDICATION
     Dosage: 20 MG, 1X/DAY:QD
  11. DARBEPOETIN ALFA [Concomitant]
     Indication: PRODUCT USED FOR UNKNOWN INDICATION
     Dosage: 50 ?G, 1X/2WKS

REACTIONS (2)
  - GASTROINTESTINAL DISORDER [None]
  - ENCEPHALOPATHY [None]
